FAERS Safety Report 4871687-4 (Version None)
Quarter: 2006Q1

REPORT INFORMATION
  Report Type: 
  Country: None (occurrence: None)
  Receive Date: 20060104
  Receipt Date: 20051121
  Transmission Date: 20060701
  Serious: Yes (Other)
  Sender: FDA-Public Use
  Company Number: US-AMGEN-US158548

PATIENT
  Sex: Male

DRUGS (6)
  1. ENBREL [Suspect]
     Indication: RHEUMATOID ARTHRITIS
     Dates: start: 20030501, end: 20050501
  2. GOLD [Concomitant]
  3. CELEBREX [Concomitant]
     Dates: end: 20041202
  4. AZULFIDINE [Concomitant]
     Dates: end: 20030507
  5. LUPRON [Concomitant]
     Dates: end: 20031201
  6. PROSCAR [Concomitant]
     Dates: end: 20031201

REACTIONS (3)
  - INTERVERTEBRAL DISCITIS [None]
  - OSTEOMYELITIS [None]
  - STREPTOCOCCAL SEPSIS [None]
